FAERS Safety Report 13872978 (Version 1)
Quarter: 2017Q3

REPORT INFORMATION
  Report Type: Spontaneous
  Country: US (occurrence: US)
  Receive Date: 20170814
  Receipt Date: 20170814
  Transmission Date: 20171127
  Serious: Yes (Life-Threatening)
  Sender: FDA-Public Use
  Company Number: None

PATIENT
  Age: 62 Year
  Sex: Male
  Weight: 71.3 kg

DRUGS (7)
  1. MORPHINE [Concomitant]
     Active Substance: MORPHINE
  2. METOCLOPRAMIDE. [Suspect]
     Active Substance: METOCLOPRAMIDE
     Indication: VOMITING
     Dosage: ?          OTHER FREQUENCY:ONCE;?
     Route: 042
     Dates: start: 20170809, end: 20170809
  3. D10 [Concomitant]
  4. ZOFRAN [Concomitant]
     Active Substance: ONDANSETRON HYDROCHLORIDE
  5. IOPAMIDOL [Concomitant]
     Active Substance: IOPAMIDOL
  6. DEXTROSE. [Concomitant]
     Active Substance: DEXTROSE
  7. PROTONIX [Concomitant]
     Active Substance: PANTOPRAZOLE SODIUM

REACTIONS (6)
  - Bradycardia [None]
  - Vomiting [None]
  - Haematemesis [None]
  - Pulse absent [None]
  - Skin discolouration [None]
  - Sinus tachycardia [None]

NARRATIVE: CASE EVENT DATE: 20170809
